FAERS Safety Report 13742183 (Version 4)
Quarter: 2018Q1

REPORT INFORMATION
  Report Type: Spontaneous
  Country: GB (occurrence: GB)
  Receive Date: 20170711
  Receipt Date: 20180313
  Transmission Date: 20180508
  Serious: Yes (Other)
  Sender: FDA-Public Use
  Company Number: GB-CELGENEUS-GBR-20170609537

PATIENT
  Age: 58 Year
  Sex: Male

DRUGS (8)
  1. REVLIMID [Suspect]
     Active Substance: LENALIDOMIDE
     Indication: CARDIAC AMYLOIDOSIS
  2. CYCLOPHOSPHAMIDE. [Suspect]
     Active Substance: CYCLOPHOSPHAMIDE
     Indication: CARDIAC AMYLOIDOSIS
     Route: 065
     Dates: start: 201307, end: 201309
  3. ENOXAPARIN [Concomitant]
     Active Substance: ENOXAPARIN
     Indication: THROMBOSIS PROPHYLAXIS
     Dosage: 80 MILLIGRAM
     Route: 065
     Dates: start: 201409
  4. BORTEZOMIB [Suspect]
     Active Substance: BORTEZOMIB
     Indication: CARDIAC AMYLOIDOSIS
     Route: 065
     Dates: start: 201307, end: 201309
  5. DEXAMETHASONE. [Suspect]
     Active Substance: DEXAMETHASONE
     Indication: CARDIAC AMYLOIDOSIS
     Route: 065
     Dates: start: 201307, end: 201309
  6. REVLIMID [Suspect]
     Active Substance: LENALIDOMIDE
     Indication: AMYLOIDOSIS
     Dosage: 25 MILLIGRAM
     Route: 048
     Dates: start: 201409
  7. DEXAMETHASONE. [Suspect]
     Active Substance: DEXAMETHASONE
     Dosage: 4 MILLIGRAM
     Route: 065
  8. DEXAMETHASONE. [Suspect]
     Active Substance: DEXAMETHASONE
     Indication: AMYLOIDOSIS
     Dosage: 10 MILLIGRAM
     Route: 065
     Dates: start: 201409

REACTIONS (8)
  - Cushingoid [Unknown]
  - Orthostatic hypotension [Recovered/Resolved]
  - Necrosis ischaemic [Recovering/Resolving]
  - Neutropenia [Unknown]
  - Jugular vein thrombosis [Recovering/Resolving]
  - Intestinal obstruction [Recovering/Resolving]
  - Gastrointestinal ischaemia [Recovering/Resolving]
  - Autonomic neuropathy [Recovered/Resolved]

NARRATIVE: CASE EVENT DATE: 2013
